APPROVED DRUG PRODUCT: LOSARTAN POTASSIUM AND HYDROCHLOROTHIAZIDE
Active Ingredient: HYDROCHLOROTHIAZIDE; LOSARTAN POTASSIUM
Strength: 25MG;100MG
Dosage Form/Route: TABLET;ORAL
Application: A091629 | Product #003 | TE Code: AB
Applicant: AUROBINDO PHARMA LTD
Approved: Jan 6, 2010 | RLD: No | RS: Yes | Type: RX